FAERS Safety Report 5122149-0 (Version None)
Quarter: 2006Q4

REPORT INFORMATION
  Report Type: 
  Country: None (occurrence: None)
  Receive Date: 20061004
  Receipt Date: 20061004
  Transmission Date: 20070319
  Serious: Yes (Other)
  Sender: FDA-Public Use
  Company Number: None

PATIENT
  Age: 43 Year
  Sex: Male
  Weight: 75.7507 kg

DRUGS (3)
  1. BIOTENE ORAL BALANCE DRY MOUTH MOISTURIZER [Suspect]
     Indication: DRY MOUTH
     Dosage: SQUIRT - 1 TEASPOON ONCE DAILY ORALLY
     Route: 048
     Dates: start: 20060731
  2. ZYRTEC [Concomitant]
  3. REMERON [Concomitant]

REACTIONS (7)
  - AGITATION [None]
  - CONTUSION [None]
  - DEPRESSED LEVEL OF CONSCIOUSNESS [None]
  - FALL [None]
  - FEELING ABNORMAL [None]
  - PSYCHOMOTOR HYPERACTIVITY [None]
  - THINKING ABNORMAL [None]
